FAERS Safety Report 25707268 (Version 1)
Quarter: 2025Q3

REPORT INFORMATION
  Report Type: Spontaneous
  Country: US (occurrence: None)
  Receive Date: 20250820
  Receipt Date: 20250820
  Transmission Date: 20251020
  Serious: Yes (Hospitalization)
  Sender: FDA-CTU
  Company Number: None

PATIENT
  Age: 75 Year
  Sex: Female

DRUGS (3)
  1. LENALIDOMIDE [Suspect]
     Active Substance: LENALIDOMIDE
     Indication: Plasma cell myeloma
     Dosage: TAKE 1 CAPSULE BY MOUTH EVERY DAY FOR 14 DAYS OF EACH 21 DAY CYCLE?
     Route: 048
     Dates: start: 20250726
  2. BORTEZOMIB INJ 1MG [Concomitant]
  3. DARZALEX [Concomitant]
     Active Substance: DARATUMUMAB

REACTIONS (2)
  - Pain [None]
  - Gout [None]

NARRATIVE: CASE EVENT DATE: 20250801
